FAERS Safety Report 21115805 (Version 5)
Quarter: 2022Q3

REPORT INFORMATION
  Report Type: Spontaneous
  Country: US (occurrence: US)
  Receive Date: 20220721
  Receipt Date: 20220810
  Transmission Date: 20221026
  Serious: Yes (Other)
  Sender: FDA-Public Use
  Company Number: US-SA-SAC20220719001150

PATIENT
  Age: 64 Year
  Sex: Female

DRUGS (1)
  1. CABLIVI [Suspect]
     Active Substance: CAPLACIZUMAB-YHDP
     Indication: Thrombotic microangiopathy
     Dosage: 11 MG, QD
     Route: 058
     Dates: start: 20220711

REACTIONS (8)
  - Haemorrhage [Unknown]
  - Contusion [Unknown]
  - Chapped lips [Unknown]
  - Lip scab [Unknown]
  - Blood pressure fluctuation [Unknown]
  - Heart rate abnormal [Unknown]
  - Dialysis [Unknown]
  - Product use in unapproved indication [Unknown]

NARRATIVE: CASE EVENT DATE: 20220701
